FAERS Safety Report 10032570 (Version 1)
Quarter: 2014Q1

REPORT INFORMATION
  Report Type: Spontaneous
  Country: US (occurrence: US)
  Receive Date: 20140324
  Receipt Date: 20140324
  Transmission Date: 20141002
  Serious: No
  Sender: FDA-Public Use
  Company Number: US-SHIONOGI, INC-2014000075

PATIENT
  Age: 67 Year
  Sex: Female
  Weight: 68.48 kg

DRUGS (2)
  1. OSPHENA [Suspect]
     Indication: VULVOVAGINAL DRYNESS
     Dosage: 60 MG, QD
     Route: 048
     Dates: start: 20131216, end: 20140207
  2. OSPHENA [Suspect]
     Indication: OFF LABEL USE

REACTIONS (4)
  - Hypersensitivity [Unknown]
  - Swollen tongue [Unknown]
  - Salivary hypersecretion [Unknown]
  - Off label use [Recovered/Resolved]
